FAERS Safety Report 19879738 (Version 1)
Quarter: 2021Q3

REPORT INFORMATION
  Report Type: Spontaneous
  Country: JP (occurrence: JP)
  Receive Date: 20210924
  Receipt Date: 20210924
  Transmission Date: 20211014
  Serious: Yes (Hospitalization)
  Sender: FDA-Public Use
  Company Number: NVSJ2021JP013877

PATIENT

DRUGS (1)
  1. REVOLADE TAB [Suspect]
     Active Substance: ELTROMBOPAG OLAMINE
     Indication: PRODUCT USED FOR UNKNOWN INDICATION
     Dosage: UNK,POSTPRANDIAL ADMINISTRATION
     Route: 048

REACTIONS (3)
  - Dysphagia [Unknown]
  - Labelled drug-food interaction medication error [Unknown]
  - Condition aggravated [Unknown]
